FAERS Safety Report 24132880 (Version 3)
Quarter: 2024Q4

REPORT INFORMATION
  Report Type: Report from Study
  Country: US (occurrence: US)
  Receive Date: 20240724
  Receipt Date: 20241106
  Transmission Date: 20250115
  Serious: Yes (Hospitalization)
  Sender: JOHNSON AND JOHNSON
  Company Number: US-JNJFOC-20240744416

PATIENT
  Age: 69 Year
  Sex: Female

DRUGS (1)
  1. SIMPONI ARIA [Suspect]
     Active Substance: GOLIMUMAB
     Indication: Spondyloarthropathy
     Route: 041
     Dates: start: 20240304

REACTIONS (2)
  - Cardiac failure [Recovering/Resolving]
  - Atrial fibrillation [Recovering/Resolving]

NARRATIVE: CASE EVENT DATE: 20240318
